FAERS Safety Report 16254364 (Version 1)
Quarter: 2019Q2

REPORT INFORMATION
  Report Type: Other
  Country: FR (occurrence: FR)
  Receive Date: 20190430
  Receipt Date: 20190430
  Transmission Date: 20190711
  Serious: Yes (Life-Threatening, Hospitalization)
  Sender: FDA-Public Use
  Company Number: FR-ORCHID HEALTHCARE-2066420

PATIENT
  Age: 60 Year
  Sex: Male

DRUGS (1)
  1. VENLAFAXINE HYDROCHLORIDE. [Suspect]
     Active Substance: VENLAFAXINE HYDROCHLORIDE
     Route: 048

REACTIONS (11)
  - Glomerular filtration rate decreased [Unknown]
  - Hallucination [Unknown]
  - Overdose [Unknown]
  - Blood pressure increased [Unknown]
  - Abdominal pain [Unknown]
  - Rhabdomyolysis [Unknown]
  - Discomfort [Unknown]
  - Drug abuse [Unknown]
  - Acute kidney injury [Unknown]
  - Blood creatine phosphokinase increased [Unknown]
  - Aggression [Unknown]
